FAERS Safety Report 10214510 (Version 2)
Quarter: 2014Q2

REPORT INFORMATION
  Report Type: Spontaneous
  Country: US (occurrence: CA)
  Receive Date: 20140603
  Receipt Date: 20140603
  Transmission Date: 20141212
  Serious: Yes (Death, Hospitalization)
  Sender: FDA-Public Use
  Company Number: US-GLAXOSMITHKLINE-A0900060A

PATIENT
  Sex: Male
  Weight: 126 kg

DRUGS (5)
  1. AVANDIA [Suspect]
     Indication: DIABETES MELLITUS
     Dosage: 4MG PER DAY
     Route: 048
     Dates: start: 20000120, end: 20040702
  2. GLUCOPHAGE [Concomitant]
  3. CARDIAZEM [Concomitant]
  4. ZOCOR [Concomitant]
  5. ZETIA [Concomitant]

REACTIONS (3)
  - Myocardial infarction [Unknown]
  - Cardiac arrest [Fatal]
  - Arrhythmia [Fatal]
